FAERS Safety Report 9924393 (Version 1)
Quarter: 2014Q1

REPORT INFORMATION
  Report Type: Spontaneous
  Country: US (occurrence: None)
  Receive Date: 20140220
  Receipt Date: 20140220
  Transmission Date: 20141002
  Serious: Yes (Life-Threatening)
  Sender: FDA-Public Use
  Company Number: 2014US00149

PATIENT
  Sex: 0

DRUGS (2)
  1. CARBOPLATIN [Suspect]
     Indication: NEOPLASM
     Dosage: 5 AUC, ONCE EVERY THREE WEEKS, INTRAVENOUS
     Route: 042
  2. NUCLEOSIDE 3 CETHYNTCYTIDINE [Suspect]
     Indication: NEOPLASM

REACTIONS (2)
  - Granulocytopenia [None]
  - Toxicity to various agents [None]
